FAERS Safety Report 13438270 (Version 2)
Quarter: 2017Q2

REPORT INFORMATION
  Report Type: Spontaneous
  Country: CH (occurrence: CH)
  Receive Date: 20170413
  Receipt Date: 20170414
  Transmission Date: 20170830
  Serious: Yes (Hospitalization)
  Sender: FDA-Public Use
  Company Number: CH-UCBSA-2017013703

PATIENT
  Age: 62 Year
  Sex: Male

DRUGS (8)
  1. METO ZEROK [Concomitant]
     Active Substance: METOPROLOL SUCCINATE
     Indication: MYOCARDIAL INFARCTION
     Dosage: 100 MG, ONCE DAILY (QD)
  2. CIMZIA [Suspect]
     Active Substance: CERTOLIZUMAB PEGOL
     Indication: ANKYLOSING SPONDYLITIS
     Dosage: UNK
     Dates: start: 201608, end: 201703
  3. INEGY [Concomitant]
     Active Substance: EZETIMIBE\SIMVASTATIN
     Indication: BLOOD CHOLESTEROL
     Dosage: 1 DF, ONCE DAILY (QD), STRENGTH: 10/20MG
  4. ARAVA [Concomitant]
     Active Substance: LEFLUNOMIDE
     Indication: SPONDYLITIS
     Dosage: 20 MG, EV 2 DAYS (QOD)
  5. ASPIRIN CARDIO [Concomitant]
     Active Substance: ASPIRIN
     Indication: MYOCARDIAL INFARCTION
     Dosage: 100 MG, ONCE DAILY (QD)
  6. APROVEL [Concomitant]
     Active Substance: IRBESARTAN
     Indication: MYOCARDIAL INFARCTION
     Dosage: 75 MG, ONCE DAILY (QD)
  7. IBUPROFENE [Concomitant]
     Active Substance: IBUPROFEN
     Indication: PRODUCT USED FOR UNKNOWN INDICATION
     Dosage: UNK
  8. NITROGEN. [Concomitant]
     Active Substance: NITROGEN
     Indication: PRODUCT USED FOR UNKNOWN INDICATION
     Dosage: UNK

REACTIONS (4)
  - Intentional product misuse [Unknown]
  - Arthritis infective [Unknown]
  - Hip surgery [Unknown]
  - Skin plaque [Not Recovered/Not Resolved]

NARRATIVE: CASE EVENT DATE: 201608
